FAERS Safety Report 9366424 (Version 1)
Quarter: 2013Q2

REPORT INFORMATION
  Report Type: Spontaneous
  Country: ES (occurrence: ES)
  Receive Date: 20130625
  Receipt Date: 20130625
  Transmission Date: 20140414
  Serious: Yes (Hospitalization)
  Sender: FDA-Public Use
  Company Number: ES-PFIZER INC-2013187315

PATIENT
  Age: 30 Month
  Sex: Female

DRUGS (8)
  1. RAPAMUNE [Suspect]
     Dosage: 3 ML, ONCE DAILY
     Route: 048
     Dates: start: 20110315
  2. TACROLIMUS [Suspect]
     Indication: ORGAN TRANSPLANT
     Dosage: UNK
     Route: 048
     Dates: start: 20100927, end: 20111107
  3. METHYLPREDNISOLONE [Concomitant]
     Dosage: UNK
     Dates: start: 20120401
  4. OMEPRAZOLE [Concomitant]
     Indication: PROPHYLAXIS AGAINST GASTROINTESTINAL ULCER
     Dosage: 10 MG, ONCE DAILY
     Route: 048
     Dates: start: 20120401
  5. AMLODIPINE [Concomitant]
     Indication: HYPERTENSION
     Dosage: UNK
     Route: 048
     Dates: start: 20120401
  6. COZAAR [Concomitant]
     Indication: HYPERTENSION
     Dosage: 2.5 MG, ONCE DAILY
     Route: 048
     Dates: start: 20120401
  7. LEVOTHROID [Concomitant]
     Indication: HYPOTHYROIDISM
     Dosage: 50 UG, 1X/DAY
     Route: 048
     Dates: start: 20120401
  8. SEPTRIN PAEDIATRIC [Concomitant]
     Indication: PROPHYLAXIS
     Dosage: UNK
     Route: 048
     Dates: start: 201104

REACTIONS (1)
  - Bone marrow failure [Not Recovered/Not Resolved]
